FAERS Safety Report 8885190 (Version 1)
Quarter: 2012Q4

REPORT INFORMATION
  Report Type: 
  Country: US (occurrence: US)
  Receive Date: 20121102
  Receipt Date: 20121102
  Transmission Date: 20130627
  Serious: No
  Sender: FDA-Public Use
  Company Number: US-PFIZER INC-2012273018

PATIENT
  Sex: Female

DRUGS (5)
  1. LYRICA [Suspect]
     Indication: PAIN IN LEG
     Dosage: 25 mg, 2x/day
     Route: 048
     Dates: start: 2010
  2. LYRICA [Suspect]
     Indication: BACK PAIN
     Dosage: 75 mg, 2x/day
     Route: 048
  3. LYRICA [Suspect]
     Indication: NUMBNESS IN LEG
  4. LYRICA [Suspect]
     Indication: NUMBNESS
  5. LYRICA [Suspect]
     Indication: NUMBNESS

REACTIONS (5)
  - Pain [Unknown]
  - Insomnia [Not Recovered/Not Resolved]
  - Headache [Not Recovered/Not Resolved]
  - Diarrhoea [Not Recovered/Not Resolved]
  - Joint swelling [Not Recovered/Not Resolved]
